FAERS Safety Report 5287801-5 (Version None)
Quarter: 2007Q2

REPORT INFORMATION
  Report Type: 
  Country: None (occurrence: None)
  Receive Date: 20070405
  Receipt Date: 20070323
  Transmission Date: 20071010
  Serious: Yes (Hospitalization)
  Sender: FDA-Public Use
  Company Number: JP-SANOFI-SYNTHELABO-A01200702151

PATIENT
  Sex: Female
  Weight: 48 kg

DRUGS (15)
  1. PLAVIX [Suspect]
     Indication: THROMBOSIS PROPHYLAXIS
     Route: 048
     Dates: start: 20070222, end: 20070226
  2. PLAVIX [Suspect]
     Indication: STENT PLACEMENT
     Route: 048
     Dates: start: 20070222, end: 20070226
  3. PLAVIX [Suspect]
     Indication: ANGINA PECTORIS
     Route: 048
     Dates: start: 20070222, end: 20070226
  4. BLOPRESS [Concomitant]
     Indication: HYPERTENSION
     Route: 048
     Dates: start: 20070206, end: 20070226
  5. ASPENON [Concomitant]
     Indication: ATRIAL FIBRILLATION
     Route: 048
     Dates: start: 20070129, end: 20070226
  6. MAGNESIUM OXIDE [Concomitant]
     Indication: CONSTIPATION
     Route: 048
     Dates: start: 20010701
  7. CERCINE [Concomitant]
     Indication: INSOMNIA
     Route: 048
     Dates: start: 20010701
  8. SELBEX [Concomitant]
     Indication: GASTRITIS
     Route: 048
     Dates: start: 20010701
  9. ITOROL [Concomitant]
     Indication: ANGINA PECTORIS
     Route: 048
     Dates: start: 20061222
  10. SIMVASTATIN [Concomitant]
     Indication: HYPERLIPIDAEMIA
     Route: 048
     Dates: start: 20060531
  11. ASPIRIN [Concomitant]
     Indication: ANGINA PECTORIS
     Route: 048
     Dates: start: 20030407
  12. ADALAT [Concomitant]
     Indication: HYPERTENSION
     Route: 048
     Dates: start: 20030407
  13. LASIX [Concomitant]
     Indication: CARDIAC FAILURE
     Route: 048
     Dates: start: 20070127
  14. HALFDIGOXIN [Concomitant]
     Indication: ATRIAL FIBRILLATION
     Dosage: 0.0625 MG
     Route: 048
     Dates: start: 20070203
  15. MAINTATE [Concomitant]
     Indication: HYPERTENSION
     Route: 048
     Dates: start: 20030728

REACTIONS (3)
  - ANOREXIA [None]
  - HEPATIC FUNCTION ABNORMAL [None]
  - HEPATITIS CHOLESTATIC [None]
